FAERS Safety Report 16661722 (Version 1)
Quarter: 2019Q3

REPORT INFORMATION
  Report Type: Spontaneous
  Country: TR (occurrence: TR)
  Receive Date: 20190802
  Receipt Date: 20190802
  Transmission Date: 20191004
  Serious: Yes (Hospitalization)
  Sender: FDA-Public Use
  Company Number: TR-JNJFOC-20190733529

PATIENT
  Age: 70 Year
  Sex: Male

DRUGS (2)
  1. IMBRUVICA [Suspect]
     Active Substance: IBRUTINIB
     Indication: MANTLE CELL LYMPHOMA
     Dosage: 120MG CAPSULE 1X4 STARTED ON 25TH APRIL
     Route: 048
  2. ASPRIN [Concomitant]
     Active Substance: ASPIRIN
     Dosage: ASPIRIN 100 MG 1X1
     Route: 065

REACTIONS (1)
  - Haemothorax [Unknown]
